FAERS Safety Report 7107606-X (Version None)
Quarter: 2010Q4

REPORT INFORMATION
  Report Type: 
  Country: None (occurrence: None)
  Receive Date: 20101117
  Receipt Date: 20101109
  Transmission Date: 20110411
  Serious: Yes (Hospitalization)
  Sender: FDA-Public Use
  Company Number: US-US-EMD SERONO, INC.-231226J09USA

PATIENT
  Sex: Female

DRUGS (2)
  1. REBIF [Suspect]
     Indication: MULTIPLE SCLEROSIS
     Route: 065
     Dates: start: 20020101, end: 20070101
  2. REBIF [Suspect]
     Route: 058
     Dates: start: 20090918

REACTIONS (2)
  - LUMBAR RADICULOPATHY [None]
  - MULTIPLE SCLEROSIS RELAPSE [None]
